FAERS Safety Report 5900878-6 (Version None)
Quarter: 2008Q3

REPORT INFORMATION
  Report Type: 
  Country: None (occurrence: None)
  Receive Date: 20080925
  Receipt Date: 20080910
  Transmission Date: 20090109
  Serious: Yes (Hospitalization)
  Sender: FDA-Public Use
  Company Number: DSA_32385_2008

PATIENT
  Sex: Female

DRUGS (7)
  1. DILTIAZEM [Suspect]
     Indication: HYPERTENSION
     Dosage: (200 MG ORAL)
     Route: 048
     Dates: end: 20080506
  2. CONCOR /00802602/ (CONCOR - BISOPROLOL FUMARATE) 5 MG (NOT SPECIFIED) [Suspect]
     Indication: HYPERTENSION
     Dosage: (5 MG ORAL)
     Route: 048
     Dates: end: 20080506
  3. ISOSORBIDE MONONITRATE [Concomitant]
  4. ACETYLSALICYLATE LYSINE [Concomitant]
  5. IRBESARTAN [Concomitant]
  6. HYDROCHLOROTHIAZIDE [Concomitant]
  7. OMEPRAZOL /00661201/ [Concomitant]

REACTIONS (20)
  - ABDOMINAL PAIN UPPER [None]
  - AORTIC DILATATION [None]
  - AORTIC VALVE DISEASE [None]
  - BLOOD PRESSURE DECREASED [None]
  - BLOOD SODIUM DECREASED [None]
  - BRADYCARDIA [None]
  - BUNDLE BRANCH BLOCK [None]
  - CHEST PAIN [None]
  - DILATATION VENTRICULAR [None]
  - DRUG INTERACTION [None]
  - DYSPNOEA [None]
  - DYSURIA [None]
  - IATROGENIC INJURY [None]
  - MITRAL VALVE DISEASE [None]
  - NORMOCHROMIC NORMOCYTIC ANAEMIA [None]
  - PO2 DECREASED [None]
  - POLLAKIURIA [None]
  - SINUS ARREST [None]
  - URINARY TRACT INFECTION [None]
  - VENTRICULAR HYPOKINESIA [None]
